FAERS Safety Report 11096917 (Version 1)
Quarter: 2015Q2

REPORT INFORMATION
  Report Type: Spontaneous
  Country: US (occurrence: US)
  Receive Date: 20150507
  Receipt Date: 20150507
  Transmission Date: 20150821
  Serious: Yes (Death, Hospitalization, Other)
  Sender: FDA-Public Use
  Company Number: US-BAXTER-2015BAX022847

PATIENT
  Sex: Male

DRUGS (1)
  1. DIANEAL LOW CALCIUM PERITONEAL DIALYSIS SOLUTION WITH DEXTROSE [Suspect]
     Active Substance: CALCIUM CHLORIDE\DEXTROSE\MAGNESIUM CHLORIDE\SODIUM CHLORIDE\SODIUM LACTATE
     Indication: PERITONEAL DIALYSIS
     Route: 033
     Dates: start: 201210, end: 201504

REACTIONS (8)
  - Lung disorder [Unknown]
  - Cardiac disorder [Fatal]
  - Peritoneal dialysis complication [Unknown]
  - Myocardial infarction [Fatal]
  - Cardiac failure [Fatal]
  - Respiratory disorder [Fatal]
  - Diabetes mellitus [Unknown]
  - Condition aggravated [Unknown]

NARRATIVE: CASE EVENT DATE: 201504
